FAERS Safety Report 12909808 (Version 1)
Quarter: 2016Q4

REPORT INFORMATION
  Report Type: Spontaneous
  Country: US (occurrence: US)
  Receive Date: 20161104
  Receipt Date: 20161104
  Transmission Date: 20170207
  Serious: Yes (Death, Hospitalization)
  Sender: FDA-Public Use
  Company Number: PHHY2016US150773

PATIENT
  Age: 51 Year
  Sex: Female

DRUGS (5)
  1. MYCOPHENOLATE [Suspect]
     Active Substance: MYCOPHENOLIC ACID
     Indication: LUNG TRANSPLANT
     Route: 065
  2. CICLOSPORIN [Suspect]
     Active Substance: CYCLOSPORINE
     Indication: LUNG TRANSPLANT
     Route: 065
  3. MYCOPHENOLATE [Suspect]
     Active Substance: MYCOPHENOLIC ACID
     Indication: IMMUNOSUPPRESSANT DRUG THERAPY
  4. PREDNISONE. [Suspect]
     Active Substance: PREDNISONE
     Indication: LUNG TRANSPLANT
     Route: 065
  5. CICLOSPORIN [Suspect]
     Active Substance: CYCLOSPORINE
     Indication: IMMUNOSUPPRESSANT DRUG THERAPY

REACTIONS (11)
  - Encephalitis viral [Fatal]
  - West Nile viral infection [Fatal]
  - Pyrexia [Fatal]
  - Pleocytosis [Fatal]
  - Product use issue [Unknown]
  - Agitation [Fatal]
  - Brain death [Fatal]
  - VIth nerve paralysis [Fatal]
  - Vomiting [Fatal]
  - Mental disorder [Fatal]
  - Encephalopathy [Fatal]
